FAERS Safety Report 5571235-X (Version None)
Quarter: 2007Q4

REPORT INFORMATION
  Report Type: 
  Country: None (occurrence: None)
  Receive Date: 20071221
  Receipt Date: 20070305
  Transmission Date: 20080405
  Serious: No
  Sender: FDA-Public Use
  Company Number: A0641941A

PATIENT
  Sex: Female

DRUGS (5)
  1. FLONASE [Suspect]
     Route: 065
  2. FLUTICASONE PROPIONATE [Suspect]
     Route: 045
     Dates: start: 20061001, end: 20070201
  3. VITAMINS [Concomitant]
  4. CALCIUM SUPPLEMENT [Concomitant]
  5. FOSAMAX [Concomitant]

REACTIONS (2)
  - EPISTAXIS [None]
  - SINUS HEADACHE [None]
